FAERS Safety Report 7809645-X (Version None)
Quarter: 2011Q4

REPORT INFORMATION
  Report Type: 
  Country: None (occurrence: None)
  Receive Date: 20111012
  Receipt Date: 20111011
  Transmission Date: 20120403
  Serious: Yes (Disabling)
  Sender: FDA-Public Use
  Company Number: US-BRISTOL-MYERS SQUIBB COMPANY-15880354

PATIENT
  Age: 62 Year
  Sex: Female

DRUGS (12)
  1. NEULASTA [Concomitant]
     Dates: start: 20110607
  2. IXEMPRA KIT [Suspect]
     Indication: BREAST CANCER METASTATIC
     Dosage: INITIAL GIVEN 60MG THEN REDUCED TO 48MG. INTERRUPTED ON 17MAY11 AND 31MAY11,RESTARTED ON 08JUN11
     Route: 042
     Dates: start: 20110510
  3. KYTRIL [Concomitant]
     Indication: PREMEDICATION
  4. DECADRON [Concomitant]
     Indication: PREMEDICATION
  5. CYTOXAN [Concomitant]
     Dates: start: 20060101
  6. TAXOTERE [Concomitant]
     Dates: start: 20060101
  7. GEMZAR [Concomitant]
     Dates: start: 20100101
  8. ZOMETA [Concomitant]
     Dates: start: 20110608
  9. TAXOL [Concomitant]
     Dates: start: 20090101
  10. AVASTIN [Concomitant]
  11. XELODA [Suspect]
     Dates: start: 20110510, end: 20110524
  12. BENADRYL [Concomitant]
     Indication: PREMEDICATION

REACTIONS (2)
  - ASCITES [None]
  - NEUTROPENIA [None]
